FAERS Safety Report 7016875-6 (Version None)
Quarter: 2010Q3

REPORT INFORMATION
  Report Type: 
  Country: None (occurrence: None)
  Receive Date: 20100927
  Receipt Date: 20100920
  Transmission Date: 20110219
  Serious: Yes (Other)
  Sender: FDA-Public Use
  Company Number: US-AMGEN-KDL439333

PATIENT
  Sex: Male

DRUGS (3)
  1. ENBREL [Suspect]
     Indication: PSORIASIS
     Dates: start: 20060101, end: 20100901
  2. TACLONEX [Concomitant]
  3. CLOBETASOL PROPIONATE [Concomitant]

REACTIONS (1)
  - RAYNAUD'S PHENOMENON [None]
